FAERS Safety Report 5502238-9 (Version None)
Quarter: 2007Q4

REPORT INFORMATION
  Report Type: 
  Country: None (occurrence: None)
  Receive Date: 20071026
  Receipt Date: 20071016
  Transmission Date: 20080405
  Serious: Yes (Death)
  Sender: FDA-Public Use
  Company Number: CHNY2007GB01351

PATIENT
  Age: 77 Year
  Sex: Male

DRUGS (4)
  1. LAMISIL [Suspect]
     Indication: TINEA PEDIS
     Dosage: SINGLE APPLICATION, TOPICAL
     Route: 061
     Dates: start: 20060101, end: 20060101
  2. ASPIRIN [Concomitant]
  3. ATENOLOL [Concomitant]
  4. BIZINJECTION [Concomitant]

REACTIONS (3)
  - CONDITION AGGRAVATED [None]
  - DRUG INEFFECTIVE [None]
  - TINEA PEDIS [None]
